FAERS Safety Report 18164724 (Version 2)
Quarter: 2020Q3

REPORT INFORMATION
  Report Type: Spontaneous
  Country: US (occurrence: US)
  Receive Date: 20200819
  Receipt Date: 20200820
  Transmission Date: 20201103
  Serious: No
  Sender: FDA-Public Use
  Company Number: US-009507513-2008USA008560

PATIENT
  Sex: Female
  Weight: 70.3 kg

DRUGS (1)
  1. NEXPLANON [Suspect]
     Active Substance: ETONOGESTREL
     Dosage: 1 IMPLANT (68 MG), ONCE EVERY THREE YEARS
     Route: 059
     Dates: start: 20190925

REACTIONS (3)
  - Implant site irritation [Unknown]
  - Implant site pruritus [Unknown]
  - Device kink [Not Recovered/Not Resolved]
